FAERS Safety Report 5502027-5 (Version None)
Quarter: 2007Q4

REPORT INFORMATION
  Report Type: 
  Country: None (occurrence: None)
  Receive Date: 20071030
  Receipt Date: 20071026
  Transmission Date: 20080405
  Serious: Yes (Other)
  Sender: FDA-Public Use
  Company Number: A0690388A

PATIENT
  Sex: Male
  Weight: 68 kg

DRUGS (3)
  1. NIQUITIN [Suspect]
     Indication: SMOKING CESSATION THERAPY
     Dosage: 21MG PER DAY
     Route: 061
     Dates: start: 20071018
  2. GARDAN TAB [Concomitant]
     Dosage: 100MG TWICE PER DAY
  3. RIVOTRIL [Concomitant]
     Dosage: 1MG PER DAY

REACTIONS (2)
  - EPILEPSY [None]
  - INTENTIONAL DRUG MISUSE [None]
